FAERS Safety Report 25661449 (Version 7)
Quarter: 2025Q4

REPORT INFORMATION
  Report Type: Report from Study
  Country: US (occurrence: US)
  Receive Date: 20250808
  Receipt Date: 20251028
  Transmission Date: 20260118
  Serious: Yes (Hospitalization)
  Sender: MALLINCKRODT
  Company Number: US-MALLINCKRODT-MNK202504877

PATIENT
  Age: 40 Year
  Sex: Female

DRUGS (2)
  1. CORTICOTROPIN [Suspect]
     Active Substance: CORTICOTROPIN
     Indication: Rheumatoid arthritis
     Dosage: 80 UNITS
     Route: 058
     Dates: start: 20250724, end: 2025
  2. CORTICOTROPIN [Suspect]
     Active Substance: CORTICOTROPIN
     Dosage: UNKNOWN
     Dates: start: 2025

REACTIONS (12)
  - Panic attack [Unknown]
  - Anxiety [Not Recovered/Not Resolved]
  - Aggression [Unknown]
  - Abnormal dreams [Unknown]
  - Illness [Unknown]
  - Hyperhidrosis [Unknown]
  - Fatigue [Unknown]
  - Blood glucose increased [Unknown]
  - Injection site pain [Unknown]
  - Depression [Unknown]
  - Terminal insomnia [Unknown]
  - Inappropriate schedule of product administration [Unknown]

NARRATIVE: CASE EVENT DATE: 20250101
